FAERS Safety Report 16223199 (Version 1)
Quarter: 2019Q2

REPORT INFORMATION
  Report Type: Spontaneous
  Country: CN (occurrence: CN)
  Receive Date: 20190422
  Receipt Date: 20190422
  Transmission Date: 20190711
  Serious: Yes (Death, Other)
  Sender: FDA-Public Use
  Company Number: CN-PFIZER INC-2019165325

PATIENT
  Age: 81 Year
  Sex: Male

DRUGS (2)
  1. LINEZOLID. [Suspect]
     Active Substance: LINEZOLID
     Indication: ENTEROCOCCUS TEST POSITIVE
  2. LINEZOLID. [Suspect]
     Active Substance: LINEZOLID
     Indication: PYELONEPHRITIS ACUTE
     Dosage: 0.6 G, 2X/DAY
     Route: 041
     Dates: start: 201303, end: 201303

REACTIONS (4)
  - Platelet count decreased [Fatal]
  - Acute kidney injury [Fatal]
  - Hyperlactacidaemia [Fatal]
  - Acute hepatic failure [Fatal]
